FAERS Safety Report 8501539-X (Version None)
Quarter: 2012Q3

REPORT INFORMATION
  Report Type: 
  Country: None (occurrence: None)
  Receive Date: 20120710
  Receipt Date: 20120706
  Transmission Date: 20120928
  Serious: Yes (Other)
  Sender: FDA-Public Use
  Company Number: US-PFIZER INC-2012162712

PATIENT
  Sex: Female
  Weight: 58.957 kg

DRUGS (3)
  1. LYRICA [Suspect]
     Indication: SPINAL COLUMN STENOSIS
     Dosage: 150 MG (2 CAPSULES OF 75 MG AT NIGHT),DAILY
     Route: 048
     Dates: start: 20120612
  2. METHOTREXATE [Concomitant]
     Indication: RHEUMATOID ARTHRITIS
     Dosage: 10 MG, WEEKLY
  3. GABAPENTIN [Concomitant]
     Indication: NECK PAIN
     Dosage: 400 MG, 2X/DAY
     Dates: start: 20070101

REACTIONS (1)
  - RHEUMATOID ARTHRITIS [None]
